FAERS Safety Report 8020424-3 (Version None)
Quarter: 2012Q1

REPORT INFORMATION
  Report Type: 
  Country: None (occurrence: None)
  Receive Date: 20120103
  Receipt Date: 20111220
  Transmission Date: 20120608
  Serious: Yes (Life-Threatening, Other)
  Sender: FDA-Public Use
  Company Number: JP-MYLANLABS-2011S1026507

PATIENT
  Age: 2 Year
  Sex: Male

DRUGS (7)
  1. CISPLATIN [Suspect]
     Indication: NEUROBLASTOMA
  2. ETOPOSIDE [Suspect]
     Indication: NEUROBLASTOMA
  3. CYCLOPHOSPHAMIDE [Suspect]
     Indication: NEUROBLASTOMA
  4. VINCRISTINE [Suspect]
     Indication: NEUROBLASTOMA
  5. CARBOPLATIN [Suspect]
     Indication: NEUROBLASTOMA
  6. MELPHALAN HYDROCHLORIDE [Suspect]
     Indication: NEUROBLASTOMA
  7. PIRARUBICIN [Suspect]
     Indication: NEUROBLASTOMA

REACTIONS (3)
  - METASTASES TO BONE [None]
  - METASTASES TO LIVER [None]
  - METASTASES TO CENTRAL NERVOUS SYSTEM [None]
